FAERS Safety Report 4821073-8 (Version None)
Quarter: 2005Q4

REPORT INFORMATION
  Report Type: 
  Country: None (occurrence: None)
  Receive Date: 20051104
  Receipt Date: 20050707
  Transmission Date: 20060501
  Serious: Yes (Disabling)
  Sender: FDA-Public Use
  Company Number: US-MERCK-0507USA01286

PATIENT
  Age: 66 Year
  Sex: Female
  Weight: 66 kg

DRUGS (9)
  1. VIOXX [Suspect]
     Indication: OSTEOARTHRITIS
     Route: 048
     Dates: start: 20011101, end: 20040801
  2. LISINOPRIL [Concomitant]
     Route: 065
  3. ZOCOR [Concomitant]
     Route: 065
  4. NIACIN [Concomitant]
     Route: 065
  5. PREMARIN [Concomitant]
     Route: 065
  6. NAPROXEN [Concomitant]
     Route: 065
  7. FOSAMAX [Concomitant]
     Route: 065
  8. VITAMINS (UNSPECIFIED) [Concomitant]
     Route: 065
  9. CALCIUM (UNSPECIFIED) [Concomitant]
     Route: 065

REACTIONS (4)
  - DYSPNOEA [None]
  - FATIGUE [None]
  - INJURY [None]
  - MYOCARDIAL INFARCTION [None]
